FAERS Safety Report 18173648 (Version 1)
Quarter: 2020Q3

REPORT INFORMATION
  Report Type: Spontaneous
  Country: US (occurrence: US)
  Receive Date: 20200820
  Receipt Date: 20200820
  Transmission Date: 20201103
  Serious: Yes (Hospitalization)
  Sender: FDA-Public Use
  Company Number: US-ROCHE-2661174

PATIENT
  Sex: Female

DRUGS (5)
  1. DIPHENOXYLATE HYDROCHLORIDE [Suspect]
     Active Substance: DIPHENOXYLATE HYDROCHLORIDE
     Indication: DIARRHOEA
     Route: 065
  2. ATROPINE SULFATE. [Suspect]
     Active Substance: ATROPINE SULFATE
     Indication: DIARRHOEA
     Route: 065
  3. ZOLPIDEM TARTATE [Concomitant]
     Active Substance: ZOLPIDEM TARTRATE
  4. XELODA [Suspect]
     Active Substance: CAPECITABINE
     Indication: BREAST CANCER FEMALE
     Route: 048
  5. CEFTRIAXONE. [Concomitant]
     Active Substance: CEFTRIAXONE

REACTIONS (14)
  - Diarrhoea [Not Recovered/Not Resolved]
  - Abdominal distension [Unknown]
  - Anxiety [Unknown]
  - Insomnia [Unknown]
  - Skin laceration [Unknown]
  - Constipation [Unknown]
  - Thrombosis [Unknown]
  - Ocular icterus [Unknown]
  - Decubitus ulcer [Unknown]
  - Dry mouth [Unknown]
  - Irritability [Unknown]
  - Neuropathy peripheral [Unknown]
  - Confusional state [Unknown]
  - Mouth ulceration [Unknown]
